FAERS Safety Report 19857064 (Version 2)
Quarter: 2021Q4

REPORT INFORMATION
  Report Type: Report from Study
  Country: CA (occurrence: CA)
  Receive Date: 20210920
  Receipt Date: 20211006
  Transmission Date: 20220303
  Serious: Yes (Other)
  Sender: FDA-Public Use
  Company Number: CA-002147023-NVSC2020CA353992

PATIENT

DRUGS (1)
  1. RUXOLITINIB [Suspect]
     Active Substance: RUXOLITINIB
     Indication: Myelofibrosis
     Dosage: 15 MG, QD
     Route: 065

REACTIONS (4)
  - Inappropriate schedule of product administration [Unknown]
  - Drug ineffective [Unknown]
  - Polycythaemia vera [Unknown]
  - Pruritus [Unknown]
